FAERS Safety Report 5747581-3 (Version None)
Quarter: 2008Q2

REPORT INFORMATION
  Report Type: 
  Country: None (occurrence: None)
  Receive Date: 20080523
  Receipt Date: 20080513
  Transmission Date: 20081010
  Serious: Yes (Hospitalization)
  Sender: FDA-Public Use
  Company Number: US-WYE-H04071708

PATIENT
  Age: 67 Year
  Sex: Female

DRUGS (7)
  1. EFFEXOR XR [Suspect]
     Indication: DEPRESSION
     Dosage: UNKNOWN
     Route: 048
     Dates: start: 20060101, end: 20070101
  2. EFFEXOR XR [Suspect]
     Dosage: INCREASED UP TO 300 MG
     Route: 048
     Dates: start: 20070101, end: 20070101
  3. EFFEXOR XR [Suspect]
     Route: 048
     Dates: start: 20070101, end: 20080401
  4. EFFEXOR XR [Suspect]
     Route: 048
     Dates: start: 20070401, end: 20070502
  5. EFFEXOR XR [Suspect]
     Route: 048
     Dates: start: 20080503
  6. OSCAL [Concomitant]
     Dosage: UNKNOWN
  7. CENTRUM SILVER [Concomitant]
     Dosage: UNKNOWN

REACTIONS (15)
  - CRYING [None]
  - DECREASED INTEREST [None]
  - DRUG INEFFECTIVE [None]
  - DRUG WITHDRAWAL SYNDROME [None]
  - FATIGUE [None]
  - FEELING ABNORMAL [None]
  - HEADACHE [None]
  - HEART RATE ABNORMAL [None]
  - LABILE BLOOD PRESSURE [None]
  - MYOCARDIAL INFARCTION [None]
  - NAUSEA [None]
  - PAIN [None]
  - PALPITATIONS [None]
  - RHINITIS [None]
  - TREMOR [None]
